FAERS Safety Report 12624814 (Version 1)
Quarter: 2016Q3

REPORT INFORMATION
  Report Type: Report from Study
  Country: DE (occurrence: DE)
  Receive Date: 20160805
  Receipt Date: 20160805
  Transmission Date: 20161109
  Serious: Yes (Death)
  Sender: FDA-Public Use
  Company Number: PHHY2016DE101245

PATIENT
  Sex: Male
  Weight: 81 kg

DRUGS (1)
  1. AFINITOR [Suspect]
     Active Substance: EVEROLIMUS
     Indication: METASTATIC RENAL CELL CARCINOMA
     Dosage: 10 MG, QD
     Route: 048
     Dates: start: 20160217, end: 20160622

REACTIONS (7)
  - Metastases to pleura [Fatal]
  - Diarrhoea [Fatal]
  - Dyspnoea [Fatal]
  - Gastroenteritis clostridial [Fatal]
  - Hypotension [Fatal]
  - Malignant neoplasm progression [Fatal]
  - Metastases to lung [Fatal]

NARRATIVE: CASE EVENT DATE: 20160622
